FAERS Safety Report 4470880-2 (Version None)
Quarter: 2004Q4

REPORT INFORMATION
  Report Type: 
  Country: None (occurrence: None)
  Receive Date: 20041011
  Receipt Date: 20041001
  Transmission Date: 20050328
  Serious: Yes (Hospitalization, Other)
  Sender: FDA-Public Use
  Company Number: US-AMGEN-US094244

PATIENT
  Weight: 2.7 kg

DRUGS (1)
  1. PROCRIT [Suspect]
     Indication: PREMATURE BABY
     Route: 058

REACTIONS (3)
  - MEDICATION ERROR [None]
  - NEUTROPENIA [None]
  - OVERDOSE [None]
